FAERS Safety Report 8785296 (Version 3)
Quarter: 2012Q4

REPORT INFORMATION
  Report Type: Spontaneous
  Country: JP (occurrence: None)
  Receive Date: 20120905
  Receipt Date: 20121226
  Transmission Date: 20130628
  Serious: Yes (Death, Hospitalization, Other)
  Sender: FDA-Public Use
  Company Number: JP-1193495

PATIENT
  Age: 92 Year
  Sex: Female
  Weight: 34 kg

DRUGS (2)
  1. FLUORESCITE [Suspect]
     Indication: ANGIOGRAM RETINA
     Route: 040
     Dates: start: 20120725, end: 20120725
  2. OPHTHAGREEN [Concomitant]

REACTIONS (11)
  - Anaphylactic shock [None]
  - Anaemia [None]
  - Cholangitis suppurative [None]
  - Sepsis [None]
  - Convulsion [None]
  - Delirium [None]
  - Cardiac arrest [None]
  - Respiratory arrest [None]
  - Cognitive disorder [None]
  - Depressed level of consciousness [None]
  - Blood urea increased [None]
